FAERS Safety Report 5348250-4 (Version None)
Quarter: 2007Q2

REPORT INFORMATION
  Report Type: 
  Country: None (occurrence: None)
  Receive Date: 20070605
  Receipt Date: 20070525
  Transmission Date: 20071010
  Serious: Yes (Hospitalization)
  Sender: FDA-Public Use
  Company Number: FABR-11990

PATIENT
  Age: 40 Year
  Sex: Female

DRUGS (6)
  1. FABRAZYME [Suspect]
     Indication: FABRY'S DISEASE
     Dates: start: 20070101
  2. INTERFERON [Concomitant]
  3. AMLODIPINE [Concomitant]
  4. METHOTREXATE [Concomitant]
  5. JODETTEN ^HENNING^ [Concomitant]
  6. ACETYLSALICYLIC ACID SRT [Concomitant]

REACTIONS (4)
  - BRAIN STEM ISCHAEMIA [None]
  - CONCOMITANT DISEASE AGGRAVATED [None]
  - MULTIPLE SCLEROSIS [None]
  - TRANSIENT ISCHAEMIC ATTACK [None]
